FAERS Safety Report 15734341 (Version 1)
Quarter: 2018Q4

REPORT INFORMATION
  Report Type: Spontaneous
  Country: US (occurrence: US)
  Receive Date: 20181203
  Receipt Date: 20181203
  Transmission Date: 20190205
  Serious: No
  Sender: FDA-Public Use
  Company Number: None

PATIENT
  Age: 69 Year
  Sex: Female

DRUGS (1)
  1. TALTZ [Suspect]
     Active Substance: IXEKIZUMAB
     Indication: PSORIATIC ARTHROPATHY
     Route: 058
     Dates: start: 20181115, end: 20181115

REACTIONS (7)
  - Palpitations [None]
  - Injection site inflammation [None]
  - Product substitution issue [None]
  - Injection site pain [None]
  - Injection site pruritus [None]
  - Injection site erythema [None]
  - Dizziness [None]

NARRATIVE: CASE EVENT DATE: 20181130
